FAERS Safety Report 9729756 (Version 1)
Quarter: 2013Q4

REPORT INFORMATION
  Report Type: Spontaneous
  Country: US (occurrence: US)
  Receive Date: 20131204
  Receipt Date: 20131204
  Transmission Date: 20140711
  Serious: Yes (Hospitalization)
  Sender: FDA-Public Use
  Company Number: US-GILEAD-2009-0021986

PATIENT
  Sex: Female

DRUGS (4)
  1. LETAIRIS [Suspect]
     Indication: PULMONARY ARTERIAL HYPERTENSION
     Dates: start: 200809
  2. LETAIRIS [Suspect]
     Dates: start: 200805
  3. PREDNISONE [Concomitant]
  4. OXYGEN [Concomitant]

REACTIONS (2)
  - Oedema [Unknown]
  - Local swelling [Unknown]
